FAERS Safety Report 9734042 (Version 1)
Quarter: 2013Q4

REPORT INFORMATION
  Report Type: Spontaneous
  Country: US (occurrence: US)
  Receive Date: 20131205
  Receipt Date: 20131205
  Transmission Date: 20140711
  Serious: Yes (Other)
  Sender: FDA-Public Use
  Company Number: US-ALLERGAN-1318941US

PATIENT
  Age: 82 Year
  Sex: Male

DRUGS (1)
  1. BOTOX [Suspect]
     Indication: MUSCLE SPASTICITY
     Dosage: 300 UNITS, SINGLE
     Route: 030
     Dates: start: 20130926, end: 20130926

REACTIONS (3)
  - Antiacetylcholine receptor antibody positive [Unknown]
  - Diplopia [Unknown]
  - Extraocular muscle paresis [Unknown]
